FAERS Safety Report 23618248 (Version 1)
Quarter: 2024Q1

REPORT INFORMATION
  Report Type: Spontaneous
  Country: US (occurrence: US)
  Receive Date: 20240311
  Receipt Date: 20240311
  Transmission Date: 20240410
  Serious: Yes (Other)
  Sender: FDA-Public Use
  Company Number: US-SANDOZ-SDZ2024US024780

PATIENT
  Age: 28 Year
  Sex: Female
  Weight: 142.73 kg

DRUGS (3)
  1. ZOFRAN [Suspect]
     Active Substance: ONDANSETRON HYDROCHLORIDE
     Indication: Migraine
     Dosage: 4 MG, Q8H
     Route: 048
     Dates: start: 20181010
  2. AJOVY [Concomitant]
     Active Substance: FREMANEZUMAB-VFRM
     Indication: Migraine
     Dosage: 225 MG, 1X1 MONTH
     Route: 065
     Dates: end: 20210809
  3. FIORICET [Concomitant]
     Active Substance: ACETAMINOPHEN\BUTALBITAL\CAFFEINE
     Indication: Migraine
     Dosage: 50-325- 40 MG, 1 TAB ONSET OF MIGRAINE
     Route: 048
     Dates: start: 20181010

REACTIONS (7)
  - Arnold-Chiari malformation [Not Recovered/Not Resolved]
  - Idiopathic intracranial hypertension [Not Recovered/Not Resolved]
  - Gastrooesophageal reflux disease [Not Recovered/Not Resolved]
  - Muscle spasms [Recovered/Resolved]
  - Obesity [Not Recovered/Not Resolved]
  - Pregnancy [Recovered/Resolved]
  - Product use in unapproved indication [Unknown]

NARRATIVE: CASE EVENT DATE: 20181010
